FAERS Safety Report 8079731-0 (Version None)
Quarter: 2012Q1

REPORT INFORMATION
  Report Type: 
  Country: None (occurrence: None)
  Receive Date: 20120124
  Receipt Date: 20120109
  Transmission Date: 20120608
  Serious: Yes (Other)
  Sender: FDA-Public Use
  Company Number: 2012MA000632

PATIENT
  Age: 91 Year
  Sex: Male
  Weight: 73 kg

DRUGS (12)
  1. DANAZOL [Suspect]
     Dosage: 400 MG;QD
  2. GLIPIZIDE [Concomitant]
  3. METOPROLOL TARTRATE [Concomitant]
  4. SIMVASTATIN [Concomitant]
  5. CLOPIDOGREL [Concomitant]
  6. ATORVASTATIN [Concomitant]
  7. FLUVASTATIN [Concomitant]
  8. ASPIRIN [Concomitant]
  9. ISOSORBIDE DINITRATE [Concomitant]
  10. LEVOTHYROXINE SODIUM [Concomitant]
  11. LOVASTATIN [Suspect]
     Dosage: 40 MG;QD
  12. LISINOPRIL [Concomitant]

REACTIONS (2)
  - DRUG INTERACTION [None]
  - RHABDOMYOLYSIS [None]
